FAERS Safety Report 4934914-0 (Version None)
Quarter: 2006Q1

REPORT INFORMATION
  Report Type: 
  Country: None (occurrence: None)
  Receive Date: 20060306
  Receipt Date: 20060306
  Transmission Date: 20060701
  Serious: Yes (Disabling, Other)
  Sender: FDA-Public Use
  Company Number: None

PATIENT
  Age: 52 Year
  Sex: Female
  Weight: 47.6277 kg

DRUGS (3)
  1. LEVULAN [Suspect]
     Indication: SKIN DISORDER
     Dosage: COVERED ENTIRE FACE   ONE APPLICATION
     Dates: start: 20040313, end: 20040313
  2. TRIAMTERENE AND HYDROCHLOROTHIAZIDE [Concomitant]
  3. SYNTHROID [Concomitant]

REACTIONS (2)
  - ERYTHEMA [None]
  - THERMAL BURN [None]
